FAERS Safety Report 7888983-9 (Version None)
Quarter: 2011Q4

REPORT INFORMATION
  Report Type: 
  Country: None (occurrence: None)
  Receive Date: 20111103
  Receipt Date: 20111025
  Transmission Date: 20120403
  Serious: Yes (Hospitalization)
  Sender: FDA-Public Use
  Company Number: US-BAXTER-2011BH031753

PATIENT
  Sex: Male

DRUGS (4)
  1. DIANEAL [Suspect]
     Indication: PERITONEAL DIALYSIS
     Route: 033
     Dates: start: 20081001
  2. DIANEAL [Suspect]
     Route: 033
     Dates: start: 20081001
  3. DIANEAL [Suspect]
     Route: 033
     Dates: start: 20081001
  4. EXTRANEAL [Suspect]
     Indication: PERITONEAL DIALYSIS
     Route: 033
     Dates: start: 20081001

REACTIONS (6)
  - HAEMORRHAGE INTRACRANIAL [None]
  - WHITE BLOOD CELL COUNT INCREASED [None]
  - INCORRECT STORAGE OF DRUG [None]
  - MEMORY IMPAIRMENT [None]
  - LIQUID PRODUCT PHYSICAL ISSUE [None]
  - PERITONEAL EFFLUENT ABNORMAL [None]
